FAERS Safety Report 11234814 (Version 1)
Quarter: 2015Q2

REPORT INFORMATION
  Report Type: Report from Study
  Country: US (occurrence: None)
  Receive Date: 20150630
  Receipt Date: 20150630
  Transmission Date: 20150821
  Serious: Yes (Other)
  Sender: FDA-Public Use
  Company Number: US-002110

PATIENT
  Sex: Female

DRUGS (2)
  1. SOLUTIONS FOR PARENTERAL NUTRITION [Concomitant]
     Active Substance: AMINO ACIDS\DEXTROSE\ELECTROLYTES NOS
  2. GATTEX [Suspect]
     Active Substance: TEDUGLUTIDE\WATER
     Indication: SHORT-BOWEL SYNDROME
     Dosage: DF
     Route: 058
     Dates: start: 20150423

REACTIONS (9)
  - Feeding disorder [None]
  - Pain [None]
  - Asthenia [None]
  - Dehydration [None]
  - Refusal of treatment by patient [None]
  - Vomiting [None]
  - Nausea [None]
  - Obstruction [None]
  - Faecal vomiting [None]

NARRATIVE: CASE EVENT DATE: 2015
